FAERS Safety Report 6010782-3 (Version None)
Quarter: 2008Q4

REPORT INFORMATION
  Report Type: 
  Country: None (occurrence: None)
  Receive Date: 20081218
  Receipt Date: 20081209
  Transmission Date: 20090506
  Serious: Yes (Hospitalization, Other)
  Sender: FDA-Public Use
  Company Number: PHEH2008US10404

PATIENT
  Sex: Female

DRUGS (12)
  1. GLEEVEC [Suspect]
     Indication: EOSINOPHILIA
     Dosage: 200 MG, QD
     Route: 048
     Dates: start: 20030101, end: 20080708
  2. GLEEVEC [Suspect]
     Indication: HYPEREOSINOPHILIC SYNDROME
     Dosage: 200 MG Q M,W,F
     Dates: start: 20030101, end: 20080101
  3. SEROQUEL [Concomitant]
     Dosage: 50 Q HS
  4. LANTUS [Concomitant]
     Dosage: 150 MG, QD
  5. INSULIN [Concomitant]
     Dosage: SLIDING SCALE
  6. ASPIRIN [Concomitant]
     Dosage: 325 MG, QD
  7. CYTOMEL [Concomitant]
     Dosage: 25 MG, QD
  8. LASIX [Concomitant]
     Dosage: 60 MG, QD
  9. ALDACTONE [Concomitant]
     Dosage: 500 MG, QD
  10. LYRICA [Concomitant]
     Dosage: 75 MG, BID
  11. COZAAR [Concomitant]
     Dosage: 6.25. MG
  12. SYNTHROID [Concomitant]
     Dosage: 1.75 MCG

REACTIONS (6)
  - CARDIAC DISORDER [None]
  - CARDIAC FAILURE CONGESTIVE [None]
  - CHRONIC OBSTRUCTIVE PULMONARY DISEASE [None]
  - EJECTION FRACTION ABNORMAL [None]
  - TRACHEOSTOMY [None]
  - VOCAL CORD PARALYSIS [None]
